FAERS Safety Report 6571607-0 (Version None)
Quarter: 2010Q1

REPORT INFORMATION
  Report Type: 
  Country: None (occurrence: None)
  Receive Date: 20100205
  Receipt Date: 20100125
  Transmission Date: 20100710
  Serious: Yes (Other)
  Sender: FDA-Public Use
  Company Number: TR-MEDIMMUNE-MEDI-0010408

PATIENT
  Age: 20 Month
  Sex: Male

DRUGS (2)
  1. SYNAGIS [Suspect]
     Indication: HEART DISEASE CONGENITAL
     Route: 030
     Dates: start: 20091225
  2. DIGOXIN [Concomitant]
     Indication: HEART DISEASE CONGENITAL
     Route: 048

REACTIONS (2)
  - CONVULSION [None]
  - PYREXIA [None]
